FAERS Safety Report 8837111 (Version 4)
Quarter: 2013Q2

REPORT INFORMATION
  Report Type: Spontaneous
  Country: US (occurrence: US)
  Receive Date: 20121011
  Receipt Date: 20130624
  Transmission Date: 20140414
  Serious: No
  Sender: FDA-Public Use
  Company Number: US-TEVA-363718USA

PATIENT
  Sex: Female

DRUGS (1)
  1. QVAR [Suspect]
     Dates: start: 201202

REACTIONS (3)
  - Muscle twitching [Unknown]
  - Dyspnoea [Unknown]
  - Drug ineffective [Unknown]
